FAERS Safety Report 10277076 (Version 4)
Quarter: 2014Q3

REPORT INFORMATION
  Report Type: Report from Study
  Country: FR (occurrence: FR)
  Receive Date: 20140703
  Receipt Date: 20140812
  Transmission Date: 20150326
  Serious: Yes (Death, Hospitalization)
  Sender: FDA-Public Use
  Company Number: FR-GLAXOSMITHKLINE-B0981772B

PATIENT
  Age: 50 Year
  Sex: Male
  Weight: 65 kg

DRUGS (3)
  1. PAZOPANIB [Suspect]
     Active Substance: PAZOPANIB
     Indication: SALIVARY GLAND CANCER
     Dosage: 800MG PER DAY
     Route: 048
     Dates: start: 20140312
  2. SOLUPRED [Concomitant]
     Active Substance: PREDNISOLONE
     Indication: OEDEMA
     Route: 048
     Dates: start: 20140502
  3. LEVOTHYROX [Concomitant]
     Active Substance: LEVOTHYROXINE
     Indication: HYPOTHYROIDISM
     Route: 048
     Dates: start: 20140617

REACTIONS (2)
  - Face oedema [Fatal]
  - General physical health deterioration [Fatal]

NARRATIVE: CASE EVENT DATE: 20140624
